FAERS Safety Report 17883040 (Version 2)
Quarter: 2020Q3

REPORT INFORMATION
  Report Type: Spontaneous
  Country: CN (occurrence: CN)
  Receive Date: 20200611
  Receipt Date: 20200929
  Transmission Date: 20201103
  Serious: Yes (Hospitalization, Other)
  Sender: FDA-Public Use
  Company Number: CN-LUPIN PHARMACEUTICALS INC.-2020-02792

PATIENT
  Age: 65 Year
  Sex: Female

DRUGS (5)
  1. METHYLPREDNISOLONE. [Suspect]
     Active Substance: METHYLPREDNISOLONE
     Indication: MORVAN SYNDROME
     Dosage: 0.5 GRAM, QD
     Route: 065
  2. METHYLPREDNISOLONE. [Suspect]
     Active Substance: METHYLPREDNISOLONE
     Dosage: UNK, DOSE REDUCED
     Route: 065
  3. RITUXIMAB. [Suspect]
     Active Substance: RITUXIMAB
     Indication: MORVAN SYNDROME
     Dosage: 375 MILLIGRAM/SQ. METER, 4 CYCLES (375 MG/ME2)
     Route: 065
  4. IMMUNOGLOBULIN G HUMAN [Concomitant]
     Active Substance: HUMAN IMMUNOGLOBULIN G
     Indication: MORVAN SYNDROME
     Dosage: UNK, 0.4 G/KG/D FOR 5 DAYS
     Route: 065
  5. METHYLPREDNISOLONE. [Suspect]
     Active Substance: METHYLPREDNISOLONE
     Dosage: 3 GRAM PER SQUARE METRE
     Route: 065

REACTIONS (6)
  - Abdominal pain upper [Unknown]
  - Pain in extremity [Unknown]
  - Off label use [None]
  - Drug ineffective for unapproved indication [Unknown]
  - Vomiting [Recovered/Resolved]
  - Morvan syndrome [Unknown]
